FAERS Safety Report 5253394-1 (Version None)
Quarter: 2007Q1

REPORT INFORMATION
  Report Type: 
  Country: None (occurrence: None)
  Receive Date: 20070226
  Receipt Date: 20070215
  Transmission Date: 20070707
  Serious: Yes (Hospitalization, Other)
  Sender: FDA-Public Use
  Company Number: 2007SP000613

PATIENT
  Age: 57 Year
  Sex: Female
  Weight: 60.782 kg

DRUGS (4)
  1. TEMODAR [Suspect]
     Indication: MALIGNANT OLIGODENDROGLIOMA
     Dosage: 340 MG; PO
     Route: 048
     Dates: start: 20061214, end: 20061218
  2. ANZEMET [Concomitant]
  3. ATIVAN [Concomitant]
  4. KEPPRA [Concomitant]

REACTIONS (4)
  - FEBRILE NEUTROPENIA [None]
  - PANCYTOPENIA [None]
  - PHARYNGOLARYNGEAL PAIN [None]
  - RASH [None]
